FAERS Safety Report 12412512 (Version 1)
Quarter: 2016Q2

REPORT INFORMATION
  Report Type: Spontaneous
  Country: FR (occurrence: FR)
  Receive Date: 20160527
  Receipt Date: 20160527
  Transmission Date: 20160815
  Serious: Yes (Hospitalization)
  Sender: FDA-Public Use
  Company Number: FR-SA-2016SA101267

PATIENT
  Age: 79 Year
  Sex: Female

DRUGS (10)
  1. LASILIX [Suspect]
     Active Substance: FUROSEMIDE
     Indication: SCIATICA
     Route: 065
     Dates: start: 20160417
  2. OROZAMUDOL [Concomitant]
     Active Substance: TRAMADOL
     Dosage: ORODISPERSIBLE TABLET
     Dates: start: 20160418
  3. SKENAN [Concomitant]
     Active Substance: MORPHINE SULFATE
     Dosage: AT NOON
  4. ACTISKENAN [Concomitant]
     Active Substance: MORPHINE SULFATE
     Dosage: MORNING AND EVENING
  5. LOVENOX [Concomitant]
     Active Substance: ENOXAPARIN SODIUM
     Dosage: ANTI-XA/0.4 ML
     Dates: start: 20160417
  6. ZAMUDOL [Concomitant]
     Active Substance: TRAMADOL HYDROCHLORIDE
     Dosage: PROLONGED RELEASE CAPSULE
     Dates: start: 20160418
  7. DOLIPRANE [Concomitant]
     Active Substance: ACETAMINOPHEN
     Dates: start: 20160418
  8. AMLODIPINE [Concomitant]
     Active Substance: AMLODIPINE BESYLATE
     Dates: start: 20160419
  9. CEFOTAXIME SODIUM [Suspect]
     Active Substance: CEFOTAXIME SODIUM
     Indication: SCIATICA
     Route: 065
     Dates: start: 20160417, end: 20160420
  10. DIFFU K [Concomitant]
     Active Substance: POTASSIUM CHLORIDE
     Dates: start: 20160418

REACTIONS (1)
  - Cholestasis [Recovered/Resolved]

NARRATIVE: CASE EVENT DATE: 20160420
